FAERS Safety Report 24407632 (Version 2)
Quarter: 2024Q4

REPORT INFORMATION
  Report Type: Spontaneous
  Country: DE (occurrence: DE)
  Receive Date: 20241007
  Receipt Date: 20241217
  Transmission Date: 20250115
  Serious: Yes (Other)
  Sender: ALEXION PHARMACEUTICALS
  Company Number: DE-DCGMA-24203988

PATIENT
  Age: 62 Year
  Weight: 55 kg

DRUGS (12)
  1. ROSUVASTATIN [Suspect]
     Active Substance: ROSUVASTATIN
     Indication: Hypercholesterolaemia
     Dosage: UNK
  2. ROSUVASTATIN [Suspect]
     Active Substance: ROSUVASTATIN
     Dosage: UNK
     Route: 048
  3. ROSUVASTATIN [Suspect]
     Active Substance: ROSUVASTATIN
     Dosage: UNK
  4. ROSUVASTATIN [Suspect]
     Active Substance: ROSUVASTATIN
     Dosage: UNK
     Route: 048
  5. SIMVASTATIN [Suspect]
     Active Substance: SIMVASTATIN
     Indication: Hypercholesterolaemia
     Dosage: UNK
  6. SIMVASTATIN [Suspect]
     Active Substance: SIMVASTATIN
     Dosage: UNK
     Route: 048
  7. SIMVASTATIN [Suspect]
     Active Substance: SIMVASTATIN
     Dosage: UNK
  8. SIMVASTATIN [Suspect]
     Active Substance: SIMVASTATIN
     Dosage: UNK
     Route: 048
  9. INCLISIRAN [Suspect]
     Active Substance: INCLISIRAN
     Indication: Hypercholesterolaemia
     Dosage: 284 MILLIGRAM, ONCE
  10. INCLISIRAN [Suspect]
     Active Substance: INCLISIRAN
     Dosage: 284 MILLIGRAM, ONCE
     Route: 058
  11. INCLISIRAN [Suspect]
     Active Substance: INCLISIRAN
     Dosage: 284 MILLIGRAM, ONCE
  12. INCLISIRAN [Suspect]
     Active Substance: INCLISIRAN
     Dosage: 284 MILLIGRAM, ONCE
     Route: 058

REACTIONS (7)
  - Panic attack [Recovered/Resolved]
  - Restlessness [Recovered/Resolved]
  - Myalgia [Recovered/Resolved]
  - Immobilisation syndrome [Recovered/Resolved]
  - Mucosal inflammation [Recovered/Resolved]
  - Intervertebral disc disorder [Recovered/Resolved]
  - Fear of death [Recovered/Resolved]
